FAERS Safety Report 8640759 (Version 2)
Quarter: 2012Q4

REPORT INFORMATION
  Report Type: 
  Country: US (occurrence: US)
  Receive Date: 20120628
  Receipt Date: 20120907
  Transmission Date: 20130627
  Serious: No
  Sender: FDA-Public Use
  Company Number: US-BAYER-2012-063648

PATIENT
  Age: 49 Year
  Sex: Female

DRUGS (4)
  1. BETASERON [Suspect]
     Dosage: 0.25 mg, QOD
     Route: 058
  2. SYNTHROID [Concomitant]
     Dosage: 137 ?g, UNK
  3. VITAMIN D [Concomitant]
     Dosage: 400 u, UNK
  4. VITAMIN B12 [Concomitant]
     Dosage: 2500 ?g, UNK
     Route: 058

REACTIONS (4)
  - Injection site rash [Unknown]
  - Influenza like illness [Not Recovered/Not Resolved]
  - Injection site erythema [Not Recovered/Not Resolved]
  - Injection site swelling [Not Recovered/Not Resolved]
